FAERS Safety Report 7908705-2 (Version None)
Quarter: 2011Q4

REPORT INFORMATION
  Report Type: 
  Country: None (occurrence: None)
  Receive Date: 20111111
  Receipt Date: 20111104
  Transmission Date: 20120403
  Serious: Yes (Other)
  Sender: FDA-Public Use
  Company Number: DE-BAYER-2011-106992

PATIENT

DRUGS (1)
  1. BETASERON [Suspect]

REACTIONS (1)
  - RETINAL VEIN OCCLUSION [None]
